FAERS Safety Report 19116934 (Version 1)
Quarter: 2021Q2

REPORT INFORMATION
  Report Type: Spontaneous
  Country: US (occurrence: US)
  Receive Date: 20210410
  Receipt Date: 20210410
  Transmission Date: 20210717
  Serious: No
  Sender: FDA-Public Use
  Company Number: US-SA-2021SA104095

PATIENT
  Sex: Female

DRUGS (5)
  1. LANTUS [Suspect]
     Active Substance: INSULIN GLARGINE
     Dosage: 6 IU
     Route: 065
  2. HUMALOG [Concomitant]
     Active Substance: INSULIN LISPRO
     Dosage: 4 IU, QD (BEFORE BREAKFAST)
     Route: 065
  3. LANTUS [Suspect]
     Active Substance: INSULIN GLARGINE
     Dosage: 11 IU
     Route: 065
  4. LANTUS [Suspect]
     Active Substance: INSULIN GLARGINE
     Dosage: 7 IU, QD (NIGHTLY)
     Route: 065
  5. HUMALOG [Concomitant]
     Active Substance: INSULIN LISPRO
     Dosage: 3 IU BEFORE BREAKFAST AND LUNCH AND 4 IU BEFORE DINNER
     Route: 065

REACTIONS (4)
  - Head discomfort [Unknown]
  - Weight decreased [Unknown]
  - Intentional product use issue [Unknown]
  - Unevaluable event [Unknown]
